FAERS Safety Report 18224373 (Version 4)
Quarter: 2023Q4

REPORT INFORMATION
  Report Type: Spontaneous
  Country: US (occurrence: US)
  Receive Date: 20200902
  Receipt Date: 20231121
  Transmission Date: 20240110
  Serious: Yes (Death, Hospitalization, Other)
  Sender: FDA-Public Use
  Company Number: US-PURDUE-USA-2020-0164283

PATIENT
  Sex: Male

DRUGS (6)
  1. OXYCONTIN [Suspect]
     Active Substance: OXYCODONE HYDROCHLORIDE
     Indication: Product used for unknown indication
     Dosage: UNKNOWN
     Route: 048
  2. OXYCODONE HYDROCHLORIDE [Suspect]
     Active Substance: OXYCODONE HYDROCHLORIDE
     Indication: Product used for unknown indication
     Dosage: 280/30 MG, UNK
     Route: 048
  3. OXYCODONE HYDROCHLORIDE [Suspect]
     Active Substance: OXYCODONE HYDROCHLORIDE
     Dosage: 180/15 MG, UNK
     Route: 048
  4. OXYCODONE HYDROCHLORIDE [Suspect]
     Active Substance: OXYCODONE HYDROCHLORIDE
     Dosage: 10 MG, UNK
     Route: 048
  5. XANAX [Suspect]
     Active Substance: ALPRAZOLAM
     Indication: Product used for unknown indication
     Dosage: 60/2 MG, UNK
     Route: 065
  6. SOMA [Suspect]
     Active Substance: CARISOPRODOL
     Indication: Muscle relaxant therapy
     Dosage: 60 MG, UNK
     Route: 065

REACTIONS (7)
  - Pneumonia [Fatal]
  - Overdose [Fatal]
  - Hospitalisation [Unknown]
  - Sepsis [Unknown]
  - Acute kidney injury [Unknown]
  - Hepatic failure [Unknown]
  - Drug dependence [Unknown]

NARRATIVE: CASE EVENT DATE: 20120101
